FAERS Safety Report 6413027-5 (Version None)
Quarter: 2009Q4

REPORT INFORMATION
  Report Type: 
  Country: None (occurrence: None)
  Receive Date: 20091023
  Receipt Date: 20091023
  Transmission Date: 20100525
  Serious: Yes (Other)
  Sender: FDA-Public Use
  Company Number: None

PATIENT
  Age: 30 Year
  Sex: Male
  Weight: 90.7194 kg

DRUGS (2)
  1. SLIM XTREME 450 MG NUTRITION DIST. ,ANABOLIC [Suspect]
     Indication: WEIGHT CONTROL
     Dosage: 1 CAP 2 PER DAY AT MOST PO
     Route: 048
     Dates: start: 20091001, end: 20091020
  2. SPIKE 473 MG BIOTEST [Suspect]
     Dosage: 1 TABLET 4 PER DAY AT MOST PO
     Route: 048
     Dates: start: 20091001, end: 20091020

REACTIONS (7)
  - ABDOMINAL PAIN UPPER [None]
  - DISCOMFORT [None]
  - FATIGUE [None]
  - FLATULENCE [None]
  - HAEMATOCHEZIA [None]
  - PRODUCT QUALITY ISSUE [None]
  - WITHDRAWAL SYNDROME [None]
